FAERS Safety Report 6700298-0 (Version None)
Quarter: 2010Q2

REPORT INFORMATION
  Report Type: 
  Country: None (occurrence: None)
  Receive Date: 20100428
  Receipt Date: 20100308
  Transmission Date: 20101027
  Serious: Yes (Hospitalization, Other)
  Sender: FDA-Public Use
  Company Number: US-PFIZER INC-2010029835

PATIENT
  Sex: Male

DRUGS (14)
  1. ALPRAZOLAM [Suspect]
     Dosage: UNK
     Dates: start: 20100106, end: 20100115
  2. RIBAVIRIN [Suspect]
     Indication: HEPATITIS C
     Dosage: 1000 MG, UNK
     Dates: start: 20091216, end: 20100219
  3. RIBAVIRIN [Suspect]
     Dosage: 800 MG, UNK
     Dates: start: 20091230
  4. KLONOPIN [Suspect]
  5. INVESTIGATIONAL DRUG [Suspect]
     Indication: HEPATITIS C
     Dosage: 80 MICROGRAM, UNK
     Dates: start: 20091203, end: 20100212
  6. METHADONE [Concomitant]
     Dosage: UNK
     Dates: start: 20100106, end: 20100114
  7. LORAZEPAM [Concomitant]
  8. CITALOPRAM [Concomitant]
     Dosage: UNK
     Dates: end: 20100127
  9. BUPROPION [Concomitant]
     Dosage: UNK
     Dates: start: 20091130, end: 20100118
  10. LORTAB [Concomitant]
     Dosage: UNK
     Dates: start: 20091214, end: 20091218
  11. IBUPROFEN [Concomitant]
  12. ALKA-SELTZER [Concomitant]
     Dosage: UNK
     Dates: start: 20100105, end: 20100106
  13. OLANZAPINE [Concomitant]
  14. DIAZEPAM [Concomitant]

REACTIONS (3)
  - DEPRESSION [None]
  - OVERDOSE [None]
  - SUICIDE ATTEMPT [None]
